FAERS Safety Report 4477006-X (Version None)
Quarter: 2004Q4

REPORT INFORMATION
  Report Type: 
  Country: None (occurrence: None)
  Receive Date: 20041018
  Receipt Date: 20041006
  Transmission Date: 20050328
  Serious: Yes (Hospitalization)
  Sender: FDA-Public Use
  Company Number: FR-ABBOTT-04P-056-0276838-00

PATIENT
  Age: 56 Year
  Sex: Male

DRUGS (14)
  1. NORVIR [Suspect]
     Indication: HIV INFECTION
     Route: 048
     Dates: start: 20040701, end: 20040712
  2. NORVIR [Suspect]
     Route: 048
     Dates: start: 20040716, end: 20040718
  3. KALETRA [Suspect]
     Indication: HIV INFECTION
     Route: 048
     Dates: start: 20040701, end: 20040712
  4. KALETRA [Suspect]
     Route: 048
     Dates: start: 20040716, end: 20040718
  5. EFAVIRENZ [Suspect]
     Indication: HIV INFECTION
     Route: 048
     Dates: start: 20040701, end: 20040712
  6. EFAVIRENZ [Suspect]
     Route: 048
     Dates: start: 20040716
  7. AMPRENAVIR [Suspect]
     Indication: HIV INFECTION
     Route: 048
     Dates: start: 20040701, end: 20040712
  8. AMPRENAVIR [Suspect]
     Route: 048
     Dates: start: 20040716, end: 20040718
  9. TENOFOVIR [Suspect]
     Indication: HIV INFECTION
     Route: 048
     Dates: start: 20040701, end: 20040712
  10. TENOFOVIR [Suspect]
     Route: 048
     Dates: start: 20040716, end: 20040718
  11. DICLOFENAC [Suspect]
     Indication: GOUT
     Route: 048
     Dates: start: 20040711, end: 20040714
  12. DICLOFENAC [Suspect]
     Route: 048
     Dates: start: 20040716, end: 20040718
  13. BACTRIM [Concomitant]
     Indication: DRUG USE FOR UNKNOWN INDICATION
     Dates: start: 20030101
  14. OMEPRAZOLE [Concomitant]
     Indication: GOUT
     Dates: start: 20040711, end: 20040718

REACTIONS (7)
  - ACUTE PULMONARY OEDEMA [None]
  - HYPERKALAEMIA [None]
  - RASH [None]
  - RENAL FAILURE ACUTE [None]
  - RENAL TUBULAR NECROSIS [None]
  - UNEVALUABLE EVENT [None]
  - VENTRICULAR DYSFUNCTION [None]
